FAERS Safety Report 24975922 (Version 1)
Quarter: 2025Q1

REPORT INFORMATION
  Report Type: Spontaneous
  Country: US (occurrence: US)
  Receive Date: 20250217
  Receipt Date: 20250217
  Transmission Date: 20250408
  Serious: No
  Sender: AMGEN
  Company Number: US-AMGEN-USASP2025029795

PATIENT
  Age: 74 Year
  Sex: Male

DRUGS (2)
  1. REPATHA [Suspect]
     Active Substance: EVOLOCUMAB
     Indication: Product used for unknown indication
     Dosage: UNK UNK, QMO
     Route: 065
  2. REPATHA [Suspect]
     Active Substance: EVOLOCUMAB
     Dosage: 140 MILLIGRAM, Q2WK (TWICE A MONTH)
     Route: 065

REACTIONS (7)
  - Device difficult to use [Unknown]
  - Accidental exposure to product [Unknown]
  - Wrong technique in product usage process [Unknown]
  - Product communication issue [Unknown]
  - Drug dose omission by device [Unknown]
  - Asthenia [Unknown]
  - Malaise [Unknown]

NARRATIVE: CASE EVENT DATE: 20250212
